FAERS Safety Report 6260687-8 (Version None)
Quarter: 2009Q3

REPORT INFORMATION
  Report Type: 
  Country: None (occurrence: None)
  Receive Date: 20090706
  Receipt Date: 20090617
  Transmission Date: 20100115
  Serious: No
  Sender: FDA-Public Use
  Company Number: LTI2009A00188

PATIENT
  Sex: Female

DRUGS (2)
  1. LANSOPRAZOLE [Suspect]
     Dosage: ORAL
     Route: 048
     Dates: start: 20090601
  2. FLUOXETINE [Suspect]
     Dosage: ORAL
     Route: 048
     Dates: start: 20090601, end: 20090617

REACTIONS (4)
  - NAUSEA [None]
  - PYREXIA [None]
  - VISUAL IMPAIRMENT [None]
  - VOMITING [None]
